FAERS Safety Report 17351555 (Version 5)
Quarter: 2020Q3

REPORT INFORMATION
  Report Type: Report from Study
  Country: US (occurrence: US)
  Receive Date: 20200130
  Receipt Date: 20200804
  Transmission Date: 20201102
  Serious: Yes (Hospitalization)
  Sender: FDA-Public Use
  Company Number: US-ACTELION-A-US2018-175252

PATIENT
  Age: 46 Year
  Sex: Male
  Weight: 92.97 kg

DRUGS (14)
  1. UPTRAVI [Suspect]
     Active Substance: SELEXIPAG
     Indication: PULMONARY ARTERIAL HYPERTENSION
     Dosage: 200 MCG, BID
     Route: 048
  2. UPTRAVI [Suspect]
     Active Substance: SELEXIPAG
     Dosage: 600 MCG, BID
     Route: 048
  3. FUROSEMIDE. [Concomitant]
     Active Substance: FUROSEMIDE
  4. UPTRAVI [Suspect]
     Active Substance: SELEXIPAG
     Dosage: 1000 MCG, UNK
     Route: 048
     Dates: start: 20180525
  5. COUMADIN [Concomitant]
     Active Substance: WARFARIN SODIUM
  6. DIATEX [Concomitant]
  7. METOPROLOL. [Concomitant]
     Active Substance: METOPROLOL
  8. PREDNISONE. [Concomitant]
     Active Substance: PREDNISONE
  9. GABAPENTIN. [Concomitant]
     Active Substance: GABAPENTIN
  10. METOLAZONE. [Concomitant]
     Active Substance: METOLAZONE
  11. TORSEMIDE. [Concomitant]
     Active Substance: TORSEMIDE
  12. UPTRAVI [Suspect]
     Active Substance: SELEXIPAG
     Dosage: 1200 MCG, BID
     Route: 048
  13. METFORMIN [Concomitant]
     Active Substance: METFORMIN HYDROCHLORIDE
  14. ELIQUIS [Concomitant]
     Active Substance: APIXABAN

REACTIONS (11)
  - Coma [Recovered/Resolved]
  - Fluid retention [Unknown]
  - Infection [Unknown]
  - Fluid overload [Unknown]
  - Malaise [Unknown]
  - Loss of consciousness [Recovered/Resolved]
  - Dyspnoea [Unknown]
  - Product dose omission issue [Unknown]
  - Cardiac failure congestive [Unknown]
  - Unevaluable therapy [Unknown]
  - Peripheral swelling [Recovering/Resolving]

NARRATIVE: CASE EVENT DATE: 20180703
